FAERS Safety Report 9639346 (Version 1)
Quarter: 2013Q4

REPORT INFORMATION
  Report Type: Spontaneous
  Country: CH (occurrence: None)
  Receive Date: 20131021
  Receipt Date: 20131021
  Transmission Date: 20140711
  Serious: Yes (Hospitalization)
  Sender: FDA-Public Use
  Company Number: 2013294696

PATIENT
  Age: 90 Year
  Sex: Female

DRUGS (10)
  1. FRAGMIN [Suspect]
     Indication: ATRIAL FIBRILLATION
     Dosage: 1 DF, AS NEEDED, SUBCUTANEOUS
     Route: 058
     Dates: start: 20130925, end: 20130929
  2. FRAGMIN [Suspect]
     Indication: ATRIAL FLUTTER
     Dosage: 1 DF, AS NEEDED, SUBCUTANEOUS
     Route: 058
     Dates: start: 20130925, end: 20130929
  3. MARCOUMAR [Suspect]
     Indication: ATRIAL FIBRILLATION
     Dosage: 1 DF, AS NEEDED, ORAL
     Route: 048
     Dates: start: 20130925, end: 20130929
  4. MARCOUMAR [Suspect]
     Indication: ATRIAL FLUTTER
     Dosage: 1 DF, AS NEEDED, ORAL
     Route: 048
     Dates: start: 20130925, end: 20130929
  5. TOREM (TORASEMIDE) [Concomitant]
  6. TRIATEC (RAMIPRIL) [Concomitant]
  7. MAGNESIOCARD (MAGNESIUM ASPARTATE HYDROCHLORIDE) [Concomitant]
  8. NEURONTIN (GABAPENTIN) [Concomitant]
  9. DAFALGAN (PARACETAMOL) [Concomitant]
  10. SERESTA (OXAZEPAM) [Concomitant]

REACTIONS (7)
  - Drug reaction with eosinophilia and systemic symptoms [None]
  - Rash maculo-papular [None]
  - Application site reaction [None]
  - Pruritus [None]
  - Pyrexia [None]
  - Blood alkaline phosphatase increased [None]
  - Gamma-glutamyltransferase increased [None]
